FAERS Safety Report 19399586 (Version 1)
Quarter: 2021Q2

REPORT INFORMATION
  Report Type: Spontaneous
  Country: US (occurrence: US)
  Receive Date: 20210610
  Receipt Date: 20210610
  Transmission Date: 20210717
  Serious: No
  Sender: FDA-Public Use
  Company Number: US-PFIZER INC-2021299078

PATIENT
  Age: 55 Year
  Sex: Female

DRUGS (1)
  1. EUCRISA [Suspect]
     Active Substance: CRISABOROLE
     Dosage: UNK

REACTIONS (9)
  - Eczema [Unknown]
  - Dermatitis atopic [Unknown]
  - Rhinitis allergic [Unknown]
  - Pain [Unknown]
  - Pain in extremity [Unknown]
  - Skin weeping [Unknown]
  - Asthma [Unknown]
  - Pruritus [Unknown]
  - Allergic sinusitis [Unknown]
